FAERS Safety Report 4620491-0 (Version None)
Quarter: 2005Q1

REPORT INFORMATION
  Report Type: 
  Country: None (occurrence: None)
  Receive Date: 20050324
  Receipt Date: 20050310
  Transmission Date: 20050727
  Serious: Yes (Other)
  Sender: FDA-Public Use
  Company Number: PHEH2005US03016

PATIENT
  Age: 72 Year
  Sex: Female

DRUGS (9)
  1. VISUDYNE [Suspect]
     Indication: MACULAR DEGENERATION
     Dates: start: 20041210, end: 20041210
  2. CYTOMEL [Concomitant]
  3. METOPROLOL TARTRATE [Concomitant]
  4. ASPIRIN [Concomitant]
  5. PREMARIN [Concomitant]
  6. NORVASC [Concomitant]
  7. VITAMIN D [Concomitant]
  8. OCUVITE [Concomitant]
  9. TYLENOL (CAPLET) [Concomitant]

REACTIONS (2)
  - LICHEN PLANUS [None]
  - RASH [None]
